FAERS Safety Report 6211395-0 (Version None)
Quarter: 2009Q2

REPORT INFORMATION
  Report Type: 
  Country: None (occurrence: None)
  Receive Date: 20090602
  Receipt Date: 20090520
  Transmission Date: 20091009
  Serious: Yes (Hospitalization, Other)
  Sender: FDA-Public Use
  Company Number: FR-ELI_LILLY_AND_COMPANY-FR200905003969

PATIENT
  Age: 57 Year
  Sex: Female

DRUGS (6)
  1. GEMZAR [Suspect]
     Indication: ADENOCARCINOMA
     Dosage: 1710 MG, UNKNOWN
     Route: 042
     Dates: start: 20090225, end: 20090225
  2. ELOXATIN [Concomitant]
     Indication: ADENOCARCINOMA
     Dosage: 170 MG, DAILY (1/D)
     Route: 042
     Dates: start: 20090225, end: 20090225
  3. SOLUPRED [Concomitant]
     Dosage: 20 MG, OTHER (EVERY OTHER DAY)
     Route: 048
     Dates: start: 20090225, end: 20090301
  4. XANAX [Concomitant]
     Dosage: UNK, UNKNOWN
     Route: 065
  5. NEXIUM [Concomitant]
     Dosage: UNK, UNKNOWN
     Route: 065
  6. MOTILIUM [Concomitant]
     Dosage: UNK, UNKNOWN
     Route: 065

REACTIONS (3)
  - CHOLESTASIS [None]
  - CYTOLYTIC HEPATITIS [None]
  - GASTROINTESTINAL DISORDER [None]
